FAERS Safety Report 7278836-1 (Version None)
Quarter: 2011Q1

REPORT INFORMATION
  Report Type: 
  Country: None (occurrence: None)
  Receive Date: 20110207
  Receipt Date: 20110127
  Transmission Date: 20110831
  Serious: Yes (Hospitalization)
  Sender: FDA-Public Use
  Company Number: US-GENZYME-CLOF-1001078

PATIENT
  Age: 68 Year
  Sex: Male

DRUGS (5)
  1. CALCIUM ACETATE [Concomitant]
     Indication: PRODUCT USED FOR UNKNOWN INDICATION
     Dosage: 667 MG, BID
     Route: 048
     Dates: start: 20100702
  2. ACYCLOVIR [Concomitant]
     Indication: PROPHYLAXIS
  3. CLOFARABINE [Suspect]
     Indication: MYELODYSPLASTIC SYNDROME
     Dosage: 25 MG, QDX5
     Route: 048
     Dates: start: 20100628, end: 20100702
  4. COMPAZINE [Concomitant]
     Indication: PROPHYLAXIS OF NAUSEA AND VOMITING
     Dosage: 10 MG/DAY, PRN
     Dates: start: 20100628
  5. ALLOPURINOL [Concomitant]
     Indication: PRODUCT USED FOR UNKNOWN INDICATION
     Dosage: 300 MG, QD
     Route: 048
     Dates: start: 20100630

REACTIONS (4)
  - ENTEROCOLITIS INFECTIOUS [None]
  - HAEMORRHAGE URINARY TRACT [None]
  - MYCOBACTERIUM AVIUM COMPLEX INFECTION [None]
  - STAPHYLOCOCCAL INFECTION [None]
